FAERS Safety Report 9696072 (Version 3)
Quarter: 2014Q1

REPORT INFORMATION
  Report Type: Report from Study
  Country: US (occurrence: US)
  Receive Date: 20131119
  Receipt Date: 20140211
  Transmission Date: 20141002
  Serious: Yes (Congenital Anomaly)
  Sender: FDA-Public Use
  Company Number: US-VIIV HEALTHCARE LIMITED-A1050235A

PATIENT
  Age: 0 Day
  Sex: Female
  Weight: 3.1 kg

DRUGS (3)
  1. RETROVIR [Suspect]
     Indication: ANTIRETROVIRAL THERAPY
     Dosage: 600MG PER DAY
     Route: 064
  2. PREZISTA [Suspect]
     Indication: ANTIRETROVIRAL THERAPY
     Route: 064
  3. COMPLERA [Suspect]
     Indication: ANTIRETROVIRAL THERAPY
     Route: 064
     Dates: start: 20130411

REACTIONS (3)
  - Ventricular septal defect [Not Recovered/Not Resolved]
  - Sepsis [Unknown]
  - Pyrexia [Unknown]
